FAERS Safety Report 25922826 (Version 1)
Quarter: 2025Q4

REPORT INFORMATION
  Report Type: Spontaneous
  Country: CA (occurrence: CA)
  Receive Date: 20251015
  Receipt Date: 20251015
  Transmission Date: 20260118
  Serious: Yes (Other)
  Sender: CELLTRION
  Company Number: CA-CELLTRION INC.-2025CA036806

PATIENT

DRUGS (7)
  1. INFLIXIMAB [Suspect]
     Active Substance: INFLIXIMAB
     Indication: Colitis ulcerative
     Dosage: 5.0 MG/KG
     Route: 042
  2. INFLIXIMAB [Suspect]
     Active Substance: INFLIXIMAB
     Dosage: 300 MG
     Route: 042
  3. INFLIXIMAB [Suspect]
     Active Substance: INFLIXIMAB
     Dosage: 300 MG
     Route: 042
  4. FOLIC ACID [Concomitant]
     Active Substance: FOLIC ACID
  5. HYDROXYCHLOROQUINE [Concomitant]
     Active Substance: HYDROXYCHLOROQUINE
  6. METHOTREXATE [Concomitant]
     Active Substance: METHOTREXATE
  7. NAPROXEN [Concomitant]
     Active Substance: NAPROXEN

REACTIONS (1)
  - Knee arthroplasty [Unknown]
